FAERS Safety Report 7889901-X (Version None)
Quarter: 2011Q4

REPORT INFORMATION
  Report Type: 
  Country: None (occurrence: None)
  Receive Date: 20111103
  Receipt Date: 20111101
  Transmission Date: 20120403
  Serious: Yes (Other)
  Sender: FDA-Public Use
  Company Number: US-CEPHALON-2011005616

PATIENT
  Sex: Female
  Weight: 81 kg

DRUGS (3)
  1. NUVIGIL [Suspect]
     Route: 048
  2. SUBOXONE [Concomitant]
  3. ATENOLOL [Concomitant]

REACTIONS (1)
  - RASH GENERALISED [None]
